FAERS Safety Report 5652177-8 (Version None)
Quarter: 2008Q1

REPORT INFORMATION
  Report Type: 
  Country: None (occurrence: None)
  Receive Date: 20080304
  Receipt Date: 20080220
  Transmission Date: 20080703
  Serious: Yes (Hospitalization)
  Sender: FDA-Public Use
  Company Number: 100#08#2008-01055

PATIENT
  Age: 33 Year
  Sex: Female

DRUGS (4)
  1. IBUPROFEN [Suspect]
     Indication: DRUG USE FOR UNKNOWN INDICATION
  2. ACETAMINOPHEN [Suspect]
     Indication: DRUG USE FOR UNKNOWN INDICATION
  3. GONADOTROPIN (GONADOTROPIN) [Suspect]
     Indication: INFERTILITY FEMALE
  4. THYROXIN (THYROSIN( [Concomitant]

REACTIONS (1)
  - LICHEN PLANUS [None]
